FAERS Safety Report 23062066 (Version 1)
Quarter: 2023Q4

REPORT INFORMATION
  Report Type: Spontaneous
  Country: US (occurrence: US)
  Receive Date: 20231013
  Receipt Date: 20231013
  Transmission Date: 20240110
  Serious: No
  Sender: FDA-Public Use
  Company Number: US-GLAXOSMITHKLINE-US2023AMR140274

PATIENT
  Sex: Female

DRUGS (2)
  1. ZEJULA [Suspect]
     Active Substance: NIRAPARIB
     Indication: Ovarian cancer
     Dosage: 200 MG, QOD
  2. ZEJULA [Suspect]
     Active Substance: NIRAPARIB
     Dosage: UNK, ALTERNATES DOSE 200MG ALTERNATING WITH 100MG EVERY OTHER DAY

REACTIONS (2)
  - Haematotoxicity [Unknown]
  - Inappropriate schedule of product administration [Unknown]
